FAERS Safety Report 8030460-9 (Version None)
Quarter: 2012Q1

REPORT INFORMATION
  Report Type: 
  Country: None (occurrence: None)
  Receive Date: 20120109
  Receipt Date: 20120105
  Transmission Date: 20120608
  Serious: Yes (Other)
  Sender: FDA-Public Use
  Company Number: PHHY2011JP92753

PATIENT
  Age: 42 Year
  Sex: Male
  Weight: 72 kg

DRUGS (17)
  1. SUNITINIB MALATE [Suspect]
     Indication: METASTASES TO BONE
     Dosage: 50 MG, DAILY
     Route: 048
     Dates: start: 20090504, end: 20090519
  2. DEXAMETHASONE [Concomitant]
     Indication: RENAL CELL CARCINOMA
     Dates: start: 20090518
  3. PRIMPERAN TAB [Concomitant]
     Dates: start: 20090710
  4. SUNITINIB MALATE [Suspect]
     Dosage: 50 MG, DAILY
     Route: 048
     Dates: start: 20090615, end: 20090708
  5. PURSENNID                               /SCH/ [Concomitant]
     Indication: CONSTIPATION
     Dates: start: 20090505, end: 20090608
  6. SODIUM BICARBONATE [Concomitant]
     Dates: start: 20090710
  7. ZOMETA [Suspect]
     Indication: METASTASES TO BONE
     Dosage: 4 MG, QMO
     Route: 042
     Dates: start: 20090501
  8. SUNITINIB MALATE [Suspect]
     Dosage: 50 MG, DAILY
     Route: 048
     Dates: start: 20090727, end: 20090823
  9. DEXALTIN [Concomitant]
     Dates: start: 20090709
  10. MAGMITT [Concomitant]
     Indication: CONSTIPATION
  11. LEVOTHYROXINE SODIUM [Concomitant]
     Dates: start: 20090522
  12. SUNITINIB MALATE [Suspect]
     Dosage: 50 MG, DAILY
     Route: 048
     Dates: start: 20090907, end: 20111004
  13. FAMOTIDINE [Concomitant]
     Indication: PROPHYLAXIS
     Dates: start: 20090518
  14. UREPEARL [Concomitant]
     Dates: start: 20090527
  15. SUNITINIB MALATE [Suspect]
     Dosage: 50 MG, DAILY
     Route: 048
     Dates: start: 20090523, end: 20090531
  16. MOTILIUM [Concomitant]
     Dates: start: 20090708
  17. LAC B [Concomitant]
     Dates: start: 20090709, end: 20090711

REACTIONS (6)
  - MOUTH HAEMORRHAGE [None]
  - EXPOSED BONE IN JAW [None]
  - OSTEONECROSIS OF JAW [None]
  - GINGIVAL SWELLING [None]
  - BLEEDING TIME PROLONGED [None]
  - DENTAL FISTULA [None]
